FAERS Safety Report 7411652-6 (Version None)
Quarter: 2011Q2

REPORT INFORMATION
  Report Type: 
  Country: None (occurrence: None)
  Receive Date: 20110413
  Receipt Date: 20101012
  Transmission Date: 20111010
  Serious: Yes (Other)
  Sender: FDA-Public Use
  Company Number: US-BRISTOL-MYERS SQUIBB COMPANY-15329428

PATIENT
  Sex: Female

DRUGS (2)
  1. ERBITUX [Suspect]
  2. STEROIDS [Concomitant]
     Indication: PREMEDICATION

REACTIONS (3)
  - VOMITING [None]
  - NAUSEA [None]
  - INFUSION RELATED REACTION [None]
